FAERS Safety Report 12810564 (Version 1)
Quarter: 2016Q4

REPORT INFORMATION
  Report Type: Spontaneous
  Country: None (occurrence: None)
  Receive Date: 20161004
  Receipt Date: 20161004
  Transmission Date: 20170207
  Serious: Yes (Hospitalization)
  Sender: FDA-Public Use
  Company Number: FR-ALSI-201600255

PATIENT
  Age: 54 Year
  Sex: Male

DRUGS (1)
  1. OXYGENE MEDICINAL AIR LIQUIDE 200 BAR GAZ POUR INHALATION EN BOUTEILLE OXYGEN [Suspect]
     Active Substance: OXYGEN
     Indication: PRODUCT USED FOR UNKNOWN INDICATION
     Dates: start: 20160921

REACTIONS (4)
  - Incorrect dose administered by device [None]
  - Device malfunction [None]
  - Oxygen saturation decreased [None]
  - Accidental underdose [None]

NARRATIVE: CASE EVENT DATE: 20160921
